FAERS Safety Report 10194740 (Version 2)
Quarter: 2014Q2

REPORT INFORMATION
  Report Type: Report from Study
  Country: TR (occurrence: TR)
  Receive Date: 20140526
  Receipt Date: 20140606
  Transmission Date: 20141212
  Serious: Yes (Other)
  Sender: FDA-Public Use
  Company Number: TR-BRISTOL-MYERS SQUIBB COMPANY-20748646

PATIENT
  Age: 54 Year
  Sex: Female

DRUGS (1)
  1. BYETTA [Suspect]
     Dates: start: 20140424

REACTIONS (2)
  - Headache [Recovered/Resolved]
  - Hypertensive emergency [Recovered/Resolved]
